FAERS Safety Report 4488842-8 (Version None)
Quarter: 2004Q3

REPORT INFORMATION
  Report Type: 
  Country: None (occurrence: None)
  Receive Date: 20040921
  Receipt Date: 20040302
  Transmission Date: 20050211
  Serious: Yes (Other)
  Sender: FDA-Public Use
  Company Number: 163-20785-04030095

PATIENT
  Age: 78 Year
  Sex: Male

DRUGS (4)
  1. THALOMID [Suspect]
     Indication: MULTIPLE MYELOMA
     Dosage: 150 - 200 MG, AT BEDTIME, ORAL
     Route: 048
     Dates: start: 20031101, end: 20040301
  2. THALOMID [Suspect]
     Indication: MULTIPLE MYELOMA
     Dosage: 150 - 200 MG, AT BEDTIME, ORAL
     Route: 048
     Dates: start: 20040301
  3. ATENOLOL [Concomitant]
  4. HYDROCHLOROTHIAZIDE [Concomitant]

REACTIONS (6)
  - DIZZINESS [None]
  - DYSPNOEA [None]
  - ERYTHEMA [None]
  - FATIGUE [None]
  - LOSS OF CONSCIOUSNESS [None]
  - PARAESTHESIA [None]
